FAERS Safety Report 13206565 (Version 1)
Quarter: 2017Q1

REPORT INFORMATION
  Report Type: Spontaneous
  Country: US (occurrence: US)
  Receive Date: 20170209
  Receipt Date: 20170209
  Transmission Date: 20170428
  Serious: No
  Sender: FDA-Public Use
  Company Number: None

PATIENT
  Age: 85 Year
  Sex: Male
  Weight: 77.18 kg

DRUGS (2)
  1. VITAMIN D [Concomitant]
     Active Substance: CHOLECALCIFEROL
  2. ROPINIROLE. [Suspect]
     Active Substance: ROPINIROLE
     Indication: PARKINSON^S DISEASE
     Dosage: ?          QUANTITY:? TAERLIR;?
     Route: 048
     Dates: start: 20161129, end: 20161221

REACTIONS (5)
  - Rash [None]
  - Hallucination [None]
  - Pruritus [None]
  - Road traffic accident [None]
  - Sudden onset of sleep [None]

NARRATIVE: CASE EVENT DATE: 20161220
